FAERS Safety Report 19854322 (Version 3)
Quarter: 2021Q4

REPORT INFORMATION
  Report Type: Report from Study
  Country: ES (occurrence: None)
  Receive Date: 20210920
  Receipt Date: 20211220
  Transmission Date: 20220303
  Serious: Yes (Death)
  Sender: FDA-Public Use
  Company Number: ES-ROCHE-2911716

PATIENT

DRUGS (11)
  1. TOCILIZUMAB [Suspect]
     Active Substance: TOCILIZUMAB
     Indication: COVID-19 pneumonia
     Dosage: 8 MG/KG IN PATIENTS WEIGHING  30 KG OR 12 MG/KG IN PATIENTS WEIGHING 30 KG AS A 60-MINUTE IV INFUSIO
     Route: 042
     Dates: start: 20200401
  2. TOCILIZUMAB [Suspect]
     Active Substance: TOCILIZUMAB
     Indication: Cytokine storm
  3. METHYLPREDNISOLONE [Concomitant]
     Active Substance: METHYLPREDNISOLONE
     Indication: COVID-19
     Dates: start: 20200410, end: 20200513
  4. ENOXAPARIN [Concomitant]
     Active Substance: ENOXAPARIN
     Indication: Thrombosis prophylaxis
     Dates: start: 20200317, end: 20200525
  5. CARVEDILOL [Concomitant]
     Active Substance: CARVEDILOL
     Indication: Myocardial ischaemia
     Dates: start: 20200317, end: 20200525
  6. MORPHINE [Concomitant]
     Active Substance: MORPHINE
     Indication: COVID-19
     Dates: start: 20200319, end: 20200514
  7. ASPIRIN [Concomitant]
     Active Substance: ASPIRIN
     Indication: Myocardial ischaemia
     Dates: start: 20200317, end: 20200525
  8. CAPTOPRIL [Concomitant]
     Active Substance: CAPTOPRIL
     Indication: Myocardial ischaemia
     Dates: start: 20200317, end: 20200525
  9. ATORVASTATIN [Concomitant]
     Active Substance: ATORVASTATIN
     Indication: Dyslipidaemia
     Dates: start: 20200317, end: 20200525
  10. ANAKINRA [Concomitant]
     Active Substance: ANAKINRA
     Indication: COVID-19
     Dates: start: 20200508, end: 20200518
  11. TACROLIMUS [Concomitant]
     Active Substance: TACROLIMUS
     Indication: COVID-19
     Dates: start: 20200519, end: 20200524

REACTIONS (1)
  - Acute myocardial infarction [Fatal]

NARRATIVE: CASE EVENT DATE: 20200523
